FAERS Safety Report 19736548 (Version 1)
Quarter: 2021Q3

REPORT INFORMATION
  Report Type: Spontaneous
  Country: US (occurrence: US)
  Receive Date: 20210824
  Receipt Date: 20210824
  Transmission Date: 20211014
  Serious: No
  Sender: FDA-Public Use
  Company Number: US-BEH-2021135127

PATIENT
  Age: 61 Year
  Sex: Male

DRUGS (10)
  1. TYLENOL [Concomitant]
     Active Substance: ACETAMINOPHEN
  2. MEDROL [Concomitant]
     Active Substance: METHYLPREDNISOLONE
  3. ATIVAN [Concomitant]
     Active Substance: LORAZEPAM
  4. DIPHENHYDRAMIN [Concomitant]
     Active Substance: DIPHENHYDRAMINE
  5. MULTIPLE VITAMINS [Concomitant]
     Active Substance: VITAMINS
  6. OXYCODONE [Concomitant]
     Active Substance: OXYCODONE
  7. HIZENTRA [Suspect]
     Active Substance: HUMAN IMMUNOGLOBULIN G
     Indication: CHRONIC INFLAMMATORY DEMYELINATING POLYRADICULONEUROPATHY
     Dosage: 40 GRAM, QW
     Route: 058
  8. METOPROLOL. [Concomitant]
     Active Substance: METOPROLOL
  9. LISINOPRIL. [Concomitant]
     Active Substance: LISINOPRIL
  10. SYNVISC [Concomitant]
     Active Substance: HYLAN G-F 20

REACTIONS (1)
  - Dizziness [Unknown]

NARRATIVE: CASE EVENT DATE: 20210816
